FAERS Safety Report 8386353-0 (Version None)
Quarter: 2012Q2

REPORT INFORMATION
  Report Type: 
  Country: None (occurrence: None)
  Receive Date: 20120525
  Receipt Date: 20120514
  Transmission Date: 20120825
  Serious: Yes (Hospitalization, Other)
  Sender: FDA-Public Use
  Company Number: CA-JNJFOC-20120513166

PATIENT
  Sex: Female
  Weight: 65 kg

DRUGS (4)
  1. CELEBREX [Concomitant]
  2. REMICADE [Suspect]
     Indication: ANKYLOSING SPONDYLITIS
     Dates: start: 20091127
  3. SULFASALAZINE [Concomitant]
  4. METHOTREXATE [Concomitant]

REACTIONS (1)
  - BREAST CANCER [None]
